FAERS Safety Report 7862157-X (Version None)
Quarter: 2011Q4

REPORT INFORMATION
  Report Type: 
  Country: None (occurrence: None)
  Receive Date: 20111027
  Receipt Date: 20101102
  Transmission Date: 20120403
  Serious: No
  Sender: FDA-Public Use
  Company Number: US-AMGEN-USASP2010003030

PATIENT
  Age: 51 Year
  Sex: Female

DRUGS (2)
  1. ENBREL [Suspect]
     Indication: RHEUMATOID ARTHRITIS
     Dates: start: 20100923
  2. METHOTREXATE (TREXALL) [Concomitant]

REACTIONS (8)
  - ERYTHEMA [None]
  - HYPOAESTHESIA [None]
  - DRUG INEFFECTIVE [None]
  - HEADACHE [None]
  - ARTHROPATHY [None]
  - SINUSITIS [None]
  - FEELING ABNORMAL [None]
  - RHINORRHOEA [None]
